FAERS Safety Report 9152262 (Version 2)
Quarter: 2013Q1

REPORT INFORMATION
  Report Type: Report from Study
  Country: ES (occurrence: ES)
  Receive Date: 20130308
  Receipt Date: 20130315
  Transmission Date: 20140127
  Serious: Yes (Other)
  Sender: FDA-Public Use
  Company Number: ES-VERTEX PHARMACEUTICALS INC.-2013-002950

PATIENT
  Sex: Female

DRUGS (3)
  1. INCIVO [Suspect]
     Indication: CHRONIC HEPATITIS C
     Dosage: UNK
     Route: 048
     Dates: start: 20111213
  2. RIBAVIRIN [Suspect]
     Indication: CHRONIC HEPATITIS C
     Dosage: DOSAGE FORM: UNSPECIFIED
     Route: 065
  3. PEG INTERFERON [Suspect]
     Indication: CHRONIC HEPATITIS C
     Dosage: DOSAGE FORM: UNSPECIFIED
     Route: 065

REACTIONS (8)
  - Hyperglycaemia [Unknown]
  - Fatigue [Unknown]
  - Leukopenia [Unknown]
  - Neutropenia [Unknown]
  - Hyperbilirubinaemia [Unknown]
  - Blood creatinine increased [Unknown]
  - Lymphopenia [Unknown]
  - Anaemia [Unknown]
